FAERS Safety Report 5828435-0 (Version None)
Quarter: 2008Q3

REPORT INFORMATION
  Report Type: 
  Country: None (occurrence: None)
  Receive Date: 20080731
  Receipt Date: 20080723
  Transmission Date: 20090109
  Serious: Yes (Death, Hospitalization)
  Sender: FDA-Public Use
  Company Number: IT-AVENTIS-200619333GDDC

PATIENT
  Age: 51 Year
  Sex: Female

DRUGS (5)
  1. DOCETAXEL [Suspect]
     Route: 042
     Dates: start: 20060504, end: 20060820
  2. BEVACIZUMAB [Suspect]
     Route: 042
     Dates: start: 20060504, end: 20060820
  3. FENTANYL-100 [Concomitant]
     Dates: start: 20060714, end: 20060820
  4. DARBEPOETIN ALFA [Concomitant]
     Dosage: DOSE: UNK
     Dates: start: 20060417, end: 20060820
  5. PREDNISONE [Concomitant]
     Dates: start: 20060503, end: 20060818

REACTIONS (2)
  - ABDOMINAL PAIN [None]
  - PULMONARY EMBOLISM [None]
